FAERS Safety Report 4925688-8 (Version None)
Quarter: 2006Q1

REPORT INFORMATION
  Report Type: 
  Country: None (occurrence: None)
  Receive Date: 20060228
  Receipt Date: 20050124
  Transmission Date: 20060701
  Serious: No
  Sender: FDA-Public Use
  Company Number: US-GLAXOSMITHKLINE-A0541970A

PATIENT
  Sex: Male

DRUGS (4)
  1. LAMICTAL [Suspect]
     Indication: DEPRESSION
     Dosage: 300MG PER DAY
     Route: 048
  2. LEXAPRO [Concomitant]
  3. WELLBUTRIN [Concomitant]
  4. RISPERDAL [Concomitant]

REACTIONS (1)
  - VISUAL DISTURBANCE [None]
